FAERS Safety Report 11876889 (Version 1)
Quarter: 2015Q4

REPORT INFORMATION
  Report Type: Spontaneous
  Country: AT (occurrence: AT)
  Receive Date: 20151229
  Receipt Date: 20151229
  Transmission Date: 20160305
  Serious: Yes (Disabling)
  Sender: FDA-Public Use
  Company Number: AT-TEVA-621118ISR

PATIENT
  Age: 64 Year
  Sex: Female
  Weight: 71.3 kg

DRUGS (4)
  1. SERTRALINE [Suspect]
     Active Substance: SERTRALINE HYDROCHLORIDE
     Dosage: 50-75MG
     Route: 048
     Dates: start: 2014, end: 201403
  2. ZELDOX [Suspect]
     Active Substance: ZIPRASIDONE
     Dosage: SINCE APPROXIMATELY 10 YEARS
     Dates: start: 2005
  3. SERTRALINE [Suspect]
     Active Substance: SERTRALINE HYDROCHLORIDE
     Route: 048
     Dates: start: 201403, end: 201409
  4. SERTRALINE [Suspect]
     Active Substance: SERTRALINE HYDROCHLORIDE
     Route: 048
     Dates: start: 200306

REACTIONS (1)
  - Tardive dyskinesia [Recovered/Resolved with Sequelae]

NARRATIVE: CASE EVENT DATE: 20140301
